FAERS Safety Report 7108447-X (Version None)
Quarter: 2010Q4

REPORT INFORMATION
  Report Type: 
  Country: None (occurrence: None)
  Receive Date: 20101117
  Receipt Date: 20101109
  Transmission Date: 20110411
  Serious: Yes (Other)
  Sender: FDA-Public Use
  Company Number: B0683479A

PATIENT
  Age: 75 Year
  Sex: Male
  Weight: 60 kg

DRUGS (7)
  1. AMOXICILLIN [Suspect]
     Indication: LOWER RESPIRATORY TRACT INFECTION
     Dosage: 750MG PER DAY
     Route: 048
     Dates: start: 20101019, end: 20101024
  2. CARBOCISTEINE [Concomitant]
     Indication: COUGH
     Dosage: 25ML PER DAY
     Route: 048
     Dates: start: 20090925
  3. PRAMIPEXOLE [Concomitant]
     Indication: PARKINSON'S DISEASE
     Dosage: 6IUAX PER DAY
     Route: 048
  4. TADALAFIL [Concomitant]
     Route: 048
  5. ASPIRIN [Concomitant]
     Route: 048
  6. CO-CARELDOPA [Concomitant]
     Indication: PARKINSON'S DISEASE
     Dosage: 6IUAX PER DAY
     Route: 048
  7. ATORVASTATIN [Concomitant]
     Dosage: 10MG PER DAY
     Route: 048

REACTIONS (2)
  - HYPOKINESIA [None]
  - PARKINSONISM [None]
